FAERS Safety Report 12874840 (Version 3)
Quarter: 2018Q3

REPORT INFORMATION
  Report Type: Report from Study
  Country: JP (occurrence: JP)
  Receive Date: 20161022
  Receipt Date: 20180807
  Transmission Date: 20181010
  Serious: Yes (Hospitalization)
  Sender: FDA-Public Use
  Company Number: JP-AMGEN-JPNNI2016147227

PATIENT
  Age: 63 Year
  Sex: Male

DRUGS (4)
  1. PHOSBLOCK [Suspect]
     Active Substance: FERRIC HYDROXIDE
     Indication: PRODUCT USED FOR UNKNOWN INDICATION
     Dosage: UNK
     Route: 048
     Dates: start: 20140217
  2. CINACALCET HCL ? KHK [Suspect]
     Active Substance: CINACALCET HYDROCHLORIDE
     Dosage: UNK
     Route: 048
     Dates: start: 20160812
  3. CINACALCET HCL ? KHK [Suspect]
     Active Substance: CINACALCET HYDROCHLORIDE
     Indication: PRODUCT USED FOR UNKNOWN INDICATION
     Dosage: UNK
     Route: 048
     Dates: start: 20141114, end: 20160812
  4. EPOETIN ALFA [Suspect]
     Active Substance: ERYTHROPOIETIN
     Indication: PRODUCT USED FOR UNKNOWN INDICATION
     Dosage: UNK
     Route: 042
     Dates: start: 20140707

REACTIONS (8)
  - Urinary tract infection [Recovering/Resolving]
  - Fluid overload [Recovering/Resolving]
  - Pleural effusion [Recovering/Resolving]
  - Hospitalisation [Recovering/Resolving]
  - Chills [Recovering/Resolving]
  - Arteriovenous fistula site complication [Recovering/Resolving]
  - Pyrexia [Recovering/Resolving]
  - Arrhythmia [Unknown]

NARRATIVE: CASE EVENT DATE: 20150615
